FAERS Safety Report 10423770 (Version 1)
Quarter: 2014Q3

REPORT INFORMATION
  Report Type: Report from Study
  Country: DE (occurrence: DE)
  Receive Date: 20140902
  Receipt Date: 20140902
  Transmission Date: 20150326
  Serious: Yes (Hospitalization)
  Sender: FDA-Public Use
  Company Number: DE-TEVA-504471GER

PATIENT
  Age: 39 Year
  Sex: Female
  Weight: 58.5 kg

DRUGS (2)
  1. GEMCITABINE [Suspect]
     Active Substance: GEMCITABINE\GEMCITABINE HYDROCHLORIDE
     Indication: BREAST CANCER FEMALE
     Dosage: DOSAGE REGIME: D1/8 Q3W; LAST DOSE PRIOR TO THE SAE: 18-AUG-2014
     Route: 042
     Dates: start: 20140818, end: 20140825
  2. ABRAXANE [Suspect]
     Active Substance: PACLITAXEL
     Indication: BREAST CANCER FEMALE
     Dosage: DOSAGE REGIME: D1/8 Q3W; LAST DOSE PRIOR TO THE SAE: 18-AUG-2014
     Route: 042
     Dates: start: 20140818, end: 20140825

REACTIONS (1)
  - Laryngitis [Recovered/Resolved]

NARRATIVE: CASE EVENT DATE: 20140821
